FAERS Safety Report 5489222-9 (Version None)
Quarter: 2007Q4

REPORT INFORMATION
  Report Type: 
  Country: None (occurrence: None)
  Receive Date: 20071018
  Receipt Date: 20071009
  Transmission Date: 20080405
  Serious: Yes (Life-Threatening, Hospitalization)
  Sender: FDA-Public Use
  Company Number: FR-BAYER-200710574BFR

PATIENT
  Age: 72 Year
  Sex: Female

DRUGS (10)
  1. CIFLOX [Suspect]
     Indication: OSTEITIS
     Dosage: TOTAL DAILY DOSE: 600 MG  UNIT DOSE: 200 MG
     Route: 042
     Dates: start: 20070824, end: 20070829
  2. CIFLOX [Suspect]
     Dosage: TOTAL DAILY DOSE: 1500 MG  UNIT DOSE: 750 MG
     Route: 048
     Dates: start: 20070830
  3. CIFLOX [Suspect]
     Dosage: TOTAL DAILY DOSE: 1000 MG  UNIT DOSE: 500 MG
     Route: 048
     Dates: start: 20070829, end: 20070830
  4. CLAVENTIN [Suspect]
     Indication: OSTEITIS
     Dosage: TOTAL DAILY DOSE: 15 G
     Route: 042
     Dates: start: 20070824
  5. CALCIPARINE [Suspect]
     Indication: UNEVALUABLE EVENT
     Dosage: TOTAL DAILY DOSE: 0.6 ML
     Route: 058
     Dates: start: 20070824
  6. GENTALLINE [Concomitant]
     Indication: OSTEITIS
     Dates: start: 20070821, end: 20070824
  7. VANCOMYCIN [Concomitant]
     Indication: OSTEITIS
     Dates: start: 20070821, end: 20070824
  8. LOVENOX [Concomitant]
     Indication: UNEVALUABLE EVENT
     Dates: start: 20070817, end: 20070824
  9. IXPRIM [Concomitant]
     Indication: UNEVALUABLE EVENT
     Dates: start: 20070816, end: 20070828
  10. VENOFER [Concomitant]
     Indication: UNEVALUABLE EVENT

REACTIONS (2)
  - ALKALOSIS [None]
  - HYPOKALAEMIA [None]
